FAERS Safety Report 7233575-8 (Version None)
Quarter: 2011Q1

REPORT INFORMATION
  Report Type: 
  Country: None (occurrence: None)
  Receive Date: 20110119
  Receipt Date: 20100915
  Transmission Date: 20110831
  Serious: No
  Sender: FDA-Public Use
  Company Number: US-TEVA-247390USA

PATIENT
  Sex: Female

DRUGS (4)
  1. COPAXONE [Suspect]
     Indication: MULTIPLE SCLEROSIS
     Route: 058
  2. CALCIUM [Concomitant]
  3. VITAMIN D [Concomitant]
  4. PRENATAL VITAMINS [Concomitant]

REACTIONS (6)
  - FEELING ABNORMAL [None]
  - INJECTION SITE SWELLING [None]
  - PALPITATIONS [None]
  - INJECTION SITE ERYTHEMA [None]
  - FEELING HOT [None]
  - DIZZINESS [None]
